FAERS Safety Report 7112884-7 (Version None)
Quarter: 2010Q4

REPORT INFORMATION
  Report Type: 
  Country: None (occurrence: None)
  Receive Date: 20101119
  Receipt Date: 20100323
  Transmission Date: 20110411
  Serious: Yes (Other)
  Sender: FDA-Public Use
  Company Number: US-BRISTOL-MYERS SQUIBB COMPANY-15034929

PATIENT
  Age: 35 Year
  Sex: Female
  Weight: 118 kg

DRUGS (8)
  1. AVALIDE [Suspect]
     Dosage: 1 DF= 75/12.5MG
     Route: 048
     Dates: start: 20010101
  2. IMIPRAMINE HCL [Suspect]
     Dosage: TABS
     Route: 048
     Dates: start: 20091101
  3. PROZAC [Concomitant]
     Dates: start: 19920101
  4. ATENOLOL [Concomitant]
     Dates: start: 20010101
  5. PRILOSEC [Concomitant]
     Dates: start: 19910101
  6. METFORMIN HCL [Concomitant]
     Dates: start: 20010101
  7. LIPITOR [Concomitant]
     Dates: start: 20020101
  8. ALLEGRA [Concomitant]
     Dates: start: 20010101

REACTIONS (2)
  - ANGIOEDEMA [None]
  - PARAESTHESIA ORAL [None]
